FAERS Safety Report 12302455 (Version 1)
Quarter: 2016Q2

REPORT INFORMATION
  Report Type: Spontaneous
  Country: US (occurrence: US)
  Receive Date: 20160425
  Receipt Date: 20160425
  Transmission Date: 20160815
  Serious: No
  Sender: FDA-Public Use
  Company Number: US-GILEAD-2016-0210304

PATIENT
  Sex: Male

DRUGS (3)
  1. RANEXA [Suspect]
     Active Substance: RANOLAZINE
     Indication: PRODUCT USED FOR UNKNOWN INDICATION
     Dosage: 1000 MG, BID
     Route: 065
     Dates: start: 201604
  2. RANEXA [Suspect]
     Active Substance: RANOLAZINE
     Dosage: 1000 MG, QD
     Route: 065
  3. RANEXA [Suspect]
     Active Substance: RANOLAZINE
     Dosage: 500 MG, BID
     Route: 065

REACTIONS (3)
  - Oedema [Not Recovered/Not Resolved]
  - Dyspnoea [Not Recovered/Not Resolved]
  - Palpitations [Not Recovered/Not Resolved]

NARRATIVE: CASE EVENT DATE: 201604
